FAERS Safety Report 9788703 (Version 7)
Quarter: 2014Q4

REPORT INFORMATION
  Report Type: Report from Study
  Country: GB (occurrence: GB)
  Receive Date: 20131230
  Receipt Date: 20141215
  Transmission Date: 20150529
  Serious: Yes (Hospitalization)
  Sender: FDA-Public Use
  Company Number: GB-BAYER-2013-158627

PATIENT
  Age: 74 Year
  Sex: Male
  Weight: 119.7 kg

DRUGS (7)
  1. RADIUM-223 DICHLORIDE [Suspect]
     Active Substance: RADIUM RA-223 DICHLORIDE
     Indication: PROSTATE CANCER METASTATIC
     Dosage: 50 KBQ, ONCE
     Route: 042
     Dates: start: 20131212, end: 20131212
  2. RADIUM-223 DICHLORIDE [Suspect]
     Active Substance: RADIUM RA-223 DICHLORIDE
     Indication: PROSTATE CANCER METASTATIC
     Dosage: 50 KBQ, ONCE
     Route: 042
     Dates: start: 20140109, end: 20140109
  3. RADIUM-223 DICHLORIDE [Suspect]
     Active Substance: RADIUM RA-223 DICHLORIDE
     Indication: PROSTATE CANCER METASTATIC
     Dosage: 50 KBQ, ONCE
     Route: 042
     Dates: start: 20131113, end: 20131113
  4. RADIUM-223 DICHLORIDE [Suspect]
     Active Substance: RADIUM RA-223 DICHLORIDE
     Indication: PROSTATE CANCER METASTATIC
     Dosage: 50 KBQ, ONCE
     Route: 042
     Dates: start: 20130821, end: 20130821
  5. RADIUM-223 DICHLORIDE [Suspect]
     Active Substance: RADIUM RA-223 DICHLORIDE
     Indication: METASTASES TO BONE
     Dosage: 50 KBQ, ONCE
     Route: 042
     Dates: start: 20130918, end: 20130918
  6. RADIUM-223 DICHLORIDE [Suspect]
     Active Substance: RADIUM RA-223 DICHLORIDE
     Indication: PROSTATE CANCER METASTATIC
     Dosage: 50 KBQ, ONCE
     Route: 042
     Dates: start: 20131017, end: 20131017
  7. LOPERAMIDE [Concomitant]
     Active Substance: LOPERAMIDE
     Indication: DIARRHOEA
     Dosage: UNK UNK, PRN
     Route: 048
     Dates: start: 20131128

REACTIONS (3)
  - Vomiting [Recovered/Resolved]
  - Dizziness [Recovered/Resolved with Sequelae]
  - Dizziness [Recovered/Resolved]

NARRATIVE: CASE EVENT DATE: 20131223
